FAERS Safety Report 6981505-6 (Version None)
Quarter: 2010Q3

REPORT INFORMATION
  Report Type: 
  Country: None (occurrence: None)
  Receive Date: 20100914
  Receipt Date: 20100907
  Transmission Date: 20110219
  Serious: Yes (Hospitalization)
  Sender: FDA-Public Use
  Company Number: PHHO2010TH12750

PATIENT
  Sex: Female
  Weight: 36.5 kg

DRUGS (6)
  1. AFINITOR [Suspect]
     Indication: METASTATIC RENAL CELL CARCINOMA
     Dosage: 5 MG / DAY
     Route: 048
     Dates: start: 20100607, end: 20100822
  2. FENTANYL CITRATE [Concomitant]
  3. SENOKOT [Concomitant]
  4. MORPHINE [Concomitant]
  5. KAMILLOSAN MUNDSPRAY [Concomitant]
  6. ACYCLOVIR [Concomitant]

REACTIONS (4)
  - ANAEMIA [None]
  - DYSPNOEA [None]
  - HYPOGLYCAEMIA [None]
  - PALLOR [None]
